FAERS Safety Report 24223314 (Version 1)
Quarter: 2024Q3

REPORT INFORMATION
  Report Type: Spontaneous
  Country: US (occurrence: US)
  Receive Date: 20240819
  Receipt Date: 20240819
  Transmission Date: 20241017
  Serious: No
  Sender: ANI
  Company Number: US-ANIPHARMA-2023-US-035620

PATIENT
  Sex: 0

DRUGS (10)
  1. ANASTROZOLE [Suspect]
     Active Substance: ANASTROZOLE
     Indication: Product used for unknown indication
     Dosage: 1 MG
     Route: 065
  2. IBRANCE [Suspect]
     Active Substance: PALBOCICLIB
     Route: 065
     Dates: start: 202308
  3. CETIRIZINE HCL [Suspect]
     Active Substance: CETIRIZINE HYDROCHLORIDE
     Dosage: 10MG
     Route: 065
  4. FLONASE ALLERGY RELIEF [Suspect]
     Active Substance: FLUTICASONE PROPIONATE
     Route: 065
  5. LATANOPROST [Suspect]
     Active Substance: LATANOPROST
     Route: 065
  6. VITAMINS [Suspect]
     Active Substance: VITAMINS
     Route: 065
  7. ROSUVASTATIN CALCIUM [Suspect]
     Active Substance: ROSUVASTATIN CALCIUM
     Dosage: 20MG
     Route: 065
  8. TIMOLOL MALEATE [Suspect]
     Active Substance: TIMOLOL MALEATE
     Route: 065
  9. VALSARTAN [Suspect]
     Active Substance: VALSARTAN
     Dosage: 80MG
     Route: 065
  10. VITAMIN D [Suspect]
     Active Substance: VITAMIN D NOS
     Dosage: 25MCG
     Route: 065

REACTIONS (2)
  - Alopecia [Not Recovered/Not Resolved]
  - Arthralgia [Not Recovered/Not Resolved]
